FAERS Safety Report 4914348-5 (Version None)
Quarter: 2006Q1

REPORT INFORMATION
  Report Type: 
  Country: None (occurrence: None)
  Receive Date: 20060213
  Receipt Date: 20060127
  Transmission Date: 20060701
  Serious: Yes (Hospitalization)
  Sender: FDA-Public Use
  Company Number: DSA_27708_2006

PATIENT
  Age: 58 Year
  Sex: Male

DRUGS (4)
  1. ENALAPRIL MALEATE [Suspect]
     Dosage: DF
  2. FUROSEMIDE [Concomitant]
  3. DIGOXIN [Concomitant]
  4. NITRATES [Concomitant]

REACTIONS (17)
  - ASTHENIA [None]
  - BLOOD BICARBONATE DECREASED [None]
  - BLOOD CREATININE INCREASED [None]
  - BLOOD GLUCOSE INCREASED [None]
  - BLOOD PH DECREASED [None]
  - BLOOD PRESSURE DECREASED [None]
  - BLOOD UREA INCREASED [None]
  - CARBON DIOXIDE DECREASED [None]
  - DIZZINESS [None]
  - ELECTROCARDIOGRAM QRS COMPLEX PROLONGED [None]
  - FAILURE TO CAPTURE [None]
  - HAEMODYNAMIC INSTABILITY [None]
  - HYPERHIDROSIS [None]
  - HYPERKALAEMIA [None]
  - OXYGEN SATURATION DECREASED [None]
  - PULSE ABNORMAL [None]
  - VENOUS PRESSURE JUGULAR INCREASED [None]
